FAERS Safety Report 19509443 (Version 2)
Quarter: 2021Q3

REPORT INFORMATION
  Report Type: Spontaneous
  Country: US (occurrence: US)
  Receive Date: 20210708
  Receipt Date: 20210712
  Transmission Date: 20211014
  Serious: Yes (Other)
  Sender: FDA-Public Use
  Company Number: US-TEVA-2021-US-1930022

PATIENT
  Age: 23 Year
  Sex: Male

DRUGS (2)
  1. AMPHETAMINE W/DEXTROAMPHETAMINE [Suspect]
     Active Substance: AMPHETAMINE SULFATE\DEXTROAMPHETAMINE
     Indication: ATTENTION DEFICIT HYPERACTIVITY DISORDER
     Dosage: 7.5MG,7.5MG,7.5MG,7.5MG
     Route: 065
     Dates: start: 2019
  2. AMPHETAMINE W/DEXTROAMPHETAMINE [Suspect]
     Active Substance: AMPHETAMINE SULFATE\DEXTROAMPHETAMINE
     Route: 065
     Dates: start: 202106

REACTIONS (8)
  - Attention deficit hyperactivity disorder [Unknown]
  - Nausea [Unknown]
  - Drug ineffective [Unknown]
  - Hot flush [Unknown]
  - Depression [Unknown]
  - Anger [Unknown]
  - Vision blurred [Unknown]
  - Emotional disorder [Unknown]

NARRATIVE: CASE EVENT DATE: 2019
